FAERS Safety Report 9084504 (Version 1)
Quarter: 2013Q1

REPORT INFORMATION
  Report Type: Report from Study
  Country: US (occurrence: US)
  Receive Date: 20130130
  Receipt Date: 20130130
  Transmission Date: 20140127
  Serious: No
  Sender: FDA-Public Use
  Company Number: US-ABBOTT-12P-163-0980210-00

PATIENT
  Sex: Female

DRUGS (1)
  1. HUMIRA [Suspect]
     Indication: PRODUCT USED FOR UNKNOWN INDICATION
     Dates: start: 20120327

REACTIONS (5)
  - Unevaluable event [Unknown]
  - Nasopharyngitis [Unknown]
  - Cough [Unknown]
  - Sneezing [Unknown]
  - Unevaluable event [Unknown]
